FAERS Safety Report 5932458-0 (Version None)
Quarter: 2008Q4

REPORT INFORMATION
  Report Type: 
  Country: None (occurrence: None)
  Receive Date: 20081009
  Receipt Date: 20070926
  Transmission Date: 20090506
  Serious: Yes (Other)
  Sender: FDA-Public Use
  Company Number: PHEH2007US12855

PATIENT
  Sex: Male

DRUGS (1)
  1. ZOMETA [Suspect]
     Indication: MULTIPLE MYELOMA
     Dates: start: 20020801, end: 20040101

REACTIONS (11)
  - BLOOD IMMUNOGLOBULIN G INCREASED [None]
  - BONE DEBRIDEMENT [None]
  - DEFORMITY [None]
  - MONOCLONAL IMMUNOGLOBULIN PRESENT [None]
  - MULTIPLE MYELOMA [None]
  - OSTEONECROSIS [None]
  - PAIN [None]
  - SURGERY [None]
  - SWELLING [None]
  - TOOTH EXTRACTION [None]
  - WOUND DRAINAGE [None]
